FAERS Safety Report 5578152-X (Version None)
Quarter: 2007Q4

REPORT INFORMATION
  Report Type: 
  Country: None (occurrence: None)
  Receive Date: 20071231
  Receipt Date: 20071219
  Transmission Date: 20080405
  Serious: Yes (Hospitalization, Other)
  Sender: FDA-Public Use
  Company Number: BR-PFIZER INC-2007096537

PATIENT
  Sex: Female

DRUGS (9)
  1. XALATAN [Suspect]
     Indication: GLAUCOMA
     Route: 047
  2. XALATAN [Suspect]
     Dosage: DAILY DOSE:1DROP
     Route: 047
     Dates: start: 20020101, end: 20060101
  3. XALATAN [Suspect]
  4. LUMIGAN [Suspect]
  5. SENNA [Concomitant]
     Indication: CONSTIPATION
  6. DUSPATALIN ^SOLVAY^ [Concomitant]
     Indication: GASTRITIS
  7. BETAHISTINE [Concomitant]
     Indication: LABYRINTHITIS
     Dosage: DAILY DOSE:16MG
  8. SIMVASTATIN [Concomitant]
     Indication: BLOOD CHOLESTEROL INCREASED
     Dosage: DAILY DOSE:20MG
  9. ANTIDEPRESSANTS [Concomitant]
     Indication: DEPRESSION

REACTIONS (3)
  - EYE INFECTION [None]
  - GLAUCOMA [None]
  - LABYRINTHITIS [None]
